FAERS Safety Report 9394650 (Version 1)
Quarter: 2013Q3

REPORT INFORMATION
  Report Type: Spontaneous
  Country: US (occurrence: US)
  Receive Date: 20130711
  Receipt Date: 20130711
  Transmission Date: 20140515
  Serious: No
  Sender: FDA-Public Use
  Company Number: US-BAYER-2013-084317

PATIENT
  Sex: Female

DRUGS (4)
  1. ALEVE CAPLET [Suspect]
     Indication: ARTHRITIS
     Dosage: UNK DF, UNK
  2. TYLENOL [PARACETAMOL] [Concomitant]
  3. BAYER ASPIRIN [Concomitant]
  4. ADVIL [Concomitant]

REACTIONS (1)
  - Drug ineffective [None]
